FAERS Safety Report 9033699 (Version 3)
Quarter: 2013Q2

REPORT INFORMATION
  Report Type: Spontaneous
  Country: CA (occurrence: CA)
  Receive Date: 20130128
  Receipt Date: 20130409
  Transmission Date: 20140414
  Serious: Yes (Hospitalization, Other)
  Sender: FDA-Public Use
  Company Number: CA-AMGEN-CANSP2012075848

PATIENT
  Age: 74 Year
  Sex: Female

DRUGS (15)
  1. ENBREL [Suspect]
     Indication: RHEUMATOID ARTHRITIS
     Dosage: 49 MG/0.98 ML
     Dates: start: 20021126
  2. CLOPIDOGREL [Concomitant]
     Dosage: UNK
  3. FUROSEMIDE [Concomitant]
     Dosage: UNK
  4. LEFLUNOMIDE [Concomitant]
     Dosage: UNK
  5. METFORMIN [Concomitant]
     Dosage: UNK
  6. ROSUVASTATIN [Concomitant]
     Dosage: UNK
  7. VITAMIN C                          /00008001/ [Concomitant]
     Dosage: UNK
  8. AMLODIPINE [Concomitant]
     Dosage: UNK
  9. PALAFER [Concomitant]
     Dosage: UNK
  10. RAMIPRIL [Concomitant]
     Dosage: UNK
  11. TECTA [Concomitant]
     Dosage: UNK
  12. RISEDRONATE [Concomitant]
     Dosage: UNK
  13. OXYCODONE [Concomitant]
     Dosage: UNK
  14. SOFLAX                             /00061602/ [Concomitant]
     Dosage: UNK
  15. NITROSPRAY [Concomitant]
     Dosage: UNK

REACTIONS (4)
  - Postoperative wound complication [Not Recovered/Not Resolved]
  - Coronary artery bypass [Recovered/Resolved]
  - Cardiac arrest [Recovered/Resolved]
  - Malaise [Unknown]
